FAERS Safety Report 23322074 (Version 1)
Quarter: 2023Q4

REPORT INFORMATION
  Report Type: Spontaneous
  Country: FR (occurrence: FR)
  Receive Date: 20231220
  Receipt Date: 20231220
  Transmission Date: 20240110
  Serious: Yes (Hospitalization, Other)
  Sender: FDA-Public Use
  Company Number: FR-VERTEX PHARMACEUTICALS-2023-003828

PATIENT
  Age: 20 Year
  Sex: Female
  Weight: 41 kg

DRUGS (2)
  1. ELEXACAFTOR\IVACAFTOR\TEZACAFTOR [Suspect]
     Active Substance: ELEXACAFTOR\IVACAFTOR\TEZACAFTOR
     Indication: Cystic fibrosis
     Dosage: 2 TABS (75MG IVACAFTOR/ 50MG TEZACAFTOR/ 100MG ELEXACAFTOR)
     Route: 048
     Dates: start: 20210830
  2. KALYDECO [Suspect]
     Active Substance: IVACAFTOR
     Indication: Cystic fibrosis
     Dosage: 1 TAB
     Route: 048
     Dates: start: 20210830

REACTIONS (3)
  - Premature rupture of membranes [Unknown]
  - Premature labour [Recovered/Resolved]
  - Exposure during pregnancy [Unknown]

NARRATIVE: CASE EVENT DATE: 20230201
